FAERS Safety Report 9917156 (Version 2)
Quarter: 2014Q1

REPORT INFORMATION
  Report Type: Spontaneous
  Country: HU (occurrence: HU)
  Receive Date: 20140221
  Receipt Date: 20140303
  Transmission Date: 20141002
  Serious: Yes (Hospitalization, Other)
  Sender: FDA-Public Use
  Company Number: HU-ELI_LILLY_AND_COMPANY-HU201402003577

PATIENT
  Age: 63 Year
  Sex: Female

DRUGS (17)
  1. FORSTEO [Suspect]
     Indication: OSTEOPOROSIS
     Dosage: 20 UG, QD
     Route: 058
     Dates: start: 201309, end: 20140131
  2. METHYLPREDNISOLON                  /00049601/ [Concomitant]
  3. CHLOROQUINE [Concomitant]
  4. PANTOPRAZOL [Concomitant]
  5. CALCIUM [Concomitant]
  6. COLECALCIFEROL [Concomitant]
  7. CARVEDILOL [Concomitant]
  8. FUROSEMID                          /00032601/ [Concomitant]
  9. POTASSIUM [Concomitant]
  10. VILDAGLIPTIN [Concomitant]
  11. FENTANYL [Concomitant]
  12. ALPRAZOLAM [Concomitant]
  13. ACENOCUMAROL [Concomitant]
  14. ZOPICLON [Concomitant]
  15. TRAMADOL [Concomitant]
  16. ALLOPURINOL [Concomitant]
  17. SPIRONOLACTON [Concomitant]

REACTIONS (1)
  - Renal failure [Not Recovered/Not Resolved]
